FAERS Safety Report 7560733-5 (Version None)
Quarter: 2011Q2

REPORT INFORMATION
  Report Type: 
  Country: None (occurrence: None)
  Receive Date: 20110620
  Receipt Date: 20110620
  Transmission Date: 20111010
  Serious: Yes (Life-Threatening, Hospitalization, Disabling)
  Sender: FDA-Public Use
  Company Number: None

PATIENT
  Sex: Female
  Weight: 125 kg

DRUGS (4)
  1. MINOCYCLINE HCL [Suspect]
     Indication: ARTHRITIS
     Dosage: 100MG 2X DAY 2X DAY
     Dates: start: 20100101
  2. MINOCYCLINE HCL [Suspect]
     Indication: ARTHRITIS
     Dosage: 100MG 2X DAY 2X DAY
     Dates: start: 20110101
  3. IBUPROFEN [Suspect]
     Indication: ARTHRITIS
     Dosage: 800 MG 3X DAY
     Dates: start: 20110101
  4. IBUPROFEN [Suspect]
     Indication: ARTHRITIS
     Dosage: 800 MG 3X DAY
     Dates: start: 19810101, end: 20100101

REACTIONS (1)
  - DRUG INEFFECTIVE [None]
